FAERS Safety Report 4542773-3 (Version None)
Quarter: 2004Q4

REPORT INFORMATION
  Report Type: 
  Country: None (occurrence: None)
  Receive Date: 20041231
  Receipt Date: 20041202
  Transmission Date: 20050328
  Serious: Yes (Hospitalization)
  Sender: FDA-Public Use
  Company Number: 200413720JP

PATIENT
  Age: 75 Year
  Sex: Female
  Weight: 47.5 kg

DRUGS (10)
  1. TAXOTERE [Suspect]
     Indication: CARCINOMA
     Route: 041
     Dates: start: 20041104, end: 20041111
  2. DECADRON [Concomitant]
     Indication: NAUSEA
     Route: 041
     Dates: start: 20041104, end: 20041124
  3. KYTRIL [Concomitant]
     Indication: NAUSEA
     Route: 041
     Dates: start: 20041104, end: 20041124
  4. GASMOTIN [Concomitant]
     Indication: GASTRITIS
     Route: 048
  5. NITROL [Concomitant]
     Indication: MYOCARDIAL ISCHAEMIA
     Route: 048
  6. DILTIAZEM HCL [Concomitant]
     Indication: MYOCARDIAL ISCHAEMIA
     Route: 048
  7. ZANTAC [Concomitant]
     Indication: GASTRIC ULCER
     Route: 048
  8. ALDACTONE [Concomitant]
     Indication: CARDIAC FAILURE
     Route: 048
  9. LONGES [Concomitant]
     Indication: HYPERTENSION
     Route: 048
  10. ASPIRIN [Concomitant]
     Indication: MYOCARDIAL ISCHAEMIA
     Route: 048

REACTIONS (4)
  - ANOREXIA [None]
  - GASTRIC ULCER [None]
  - GASTRITIS [None]
  - OESOPHAGITIS [None]
